FAERS Safety Report 19922938 (Version 1)
Quarter: 2021Q4

REPORT INFORMATION
  Report Type: Spontaneous
  Country: RU (occurrence: RU)
  Receive Date: 20211006
  Receipt Date: 20211006
  Transmission Date: 20220303
  Serious: Yes (Other)
  Sender: FDA-Public Use
  Company Number: RU-STRIDES ARCOLAB LIMITED-2021SP028334

PATIENT

DRUGS (3)
  1. TACROLIMUS [Suspect]
     Active Substance: TACROLIMUS
     Indication: Allogenic stem cell transplantation
     Dosage: UNK
     Route: 065
  2. TREOSULFAN [Suspect]
     Active Substance: TREOSULFAN
     Indication: Bone marrow conditioning regimen
     Dosage: UNK
     Route: 065
  3. FLUDARABINE [Suspect]
     Active Substance: FLUDARABINE PHOSPHATE
     Indication: Bone marrow conditioning regimen
     Dosage: 150 MILLIGRAM/SQ. METER
     Route: 065

REACTIONS (2)
  - Mucosal inflammation [Unknown]
  - Off label use [Unknown]
